FAERS Safety Report 9491694 (Version 2)
Quarter: 2013Q3

REPORT INFORMATION
  Report Type: Report from Study
  Country: TW (occurrence: TW)
  Receive Date: 20130830
  Receipt Date: 20130830
  Transmission Date: 20140515
  Serious: Yes (Hospitalization)
  Sender: FDA-Public Use
  Company Number: PHHO2010TW14830

PATIENT
  Age: 77 Year
  Sex: Female
  Weight: 59 kg

DRUGS (3)
  1. ALISKIREN [Suspect]
     Indication: CARDIOVASCULAR DISORDER
     Route: 048
     Dates: start: 20090511, end: 20090608
  2. ALISKIREN [Suspect]
     Route: 048
     Dates: start: 20090609, end: 20100921
  3. COLCHICINE SANDOZ [Suspect]

REACTIONS (24)
  - Renal failure chronic [Recovering/Resolving]
  - Hyperuricaemia [Recovering/Resolving]
  - Oedema peripheral [Recovering/Resolving]
  - Hyperkalaemia [Recovering/Resolving]
  - Dyspnoea [Recovering/Resolving]
  - Gastroenteritis [Recovering/Resolving]
  - Vomiting [Recovering/Resolving]
  - Abdominal pain [Recovering/Resolving]
  - Hypovolaemia [Recovering/Resolving]
  - Diarrhoea [Recovering/Resolving]
  - Dehydration [Recovering/Resolving]
  - Haemodynamic instability [Recovering/Resolving]
  - Pneumonia [Recovering/Resolving]
  - Pyrexia [Recovering/Resolving]
  - Cough [Recovering/Resolving]
  - Hepatotoxicity [Recovering/Resolving]
  - Coagulopathy [Recovering/Resolving]
  - Hepatic function abnormal [Recovering/Resolving]
  - Gout [Recovering/Resolving]
  - Pain in extremity [Recovering/Resolving]
  - Arthralgia [Recovering/Resolving]
  - Cellulitis [Recovering/Resolving]
  - C-reactive protein increased [Recovering/Resolving]
  - Leukocytosis [Recovering/Resolving]
